FAERS Safety Report 23666603 (Version 1)
Quarter: 2024Q1

REPORT INFORMATION
  Report Type: Spontaneous
  Country: PL (occurrence: PL)
  Receive Date: 20240324
  Receipt Date: 20240324
  Transmission Date: 20240410
  Serious: Yes (Other)
  Sender: FDA-Public Use
  Company Number: None

PATIENT
  Age: 66 Year
  Sex: Female

DRUGS (1)
  1. IVABRADINE [Suspect]
     Active Substance: IVABRADINE
     Indication: Product used for unknown indication
     Dosage: 1 DOSAGE FORM, QD
     Route: 065
     Dates: start: 20190718, end: 20190719

REACTIONS (4)
  - Dyspnoea [Unknown]
  - Cough [Unknown]
  - Haemoptysis [Unknown]
  - Visual impairment [Unknown]

NARRATIVE: CASE EVENT DATE: 20190719
